FAERS Safety Report 7481030-2 (Version None)
Quarter: 2011Q2

REPORT INFORMATION
  Report Type: 
  Country: None (occurrence: None)
  Receive Date: 20110516
  Receipt Date: 20110510
  Transmission Date: 20111010
  Serious: Yes (Other)
  Sender: FDA-Public Use
  Company Number: CA-BRISTOL-MYERS SQUIBB COMPANY-15731409

PATIENT
  Age: 81 Year
  Sex: Female

DRUGS (2)
  1. COUMADIN [Suspect]
     Indication: ATRIAL FIBRILLATION
     Dates: end: 20100603
  2. XELODA [Suspect]
     Indication: COLORECTAL CANCER
     Dosage: START AS 1500MG BID(14 D),DOSE INCR TO 1650MG TID(13MY10),REDU TO 1500MG INT 9JN10,REST (1500MG)
     Route: 048
     Dates: start: 20100422, end: 20100907

REACTIONS (7)
  - BLOOD POTASSIUM DECREASED [None]
  - ABDOMINAL PAIN [None]
  - INTERNATIONAL NORMALISED RATIO ABNORMAL [None]
  - PALMAR-PLANTAR ERYTHRODYSAESTHESIA SYNDROME [None]
  - DIARRHOEA [None]
  - FALL [None]
  - WOUND NECROSIS [None]
